FAERS Safety Report 23193747 (Version 5)
Quarter: 2024Q2

REPORT INFORMATION
  Report Type: Spontaneous
  Country: US (occurrence: US)
  Receive Date: 20231116
  Receipt Date: 20240416
  Transmission Date: 20240716
  Serious: Yes (Other)
  Sender: FDA-Public Use
  Company Number: US-BEH-2023165292

PATIENT
  Age: 62 Year
  Sex: Female
  Weight: 69.841 kg

DRUGS (22)
  1. HIZENTRA [Suspect]
     Active Substance: HUMAN IMMUNOGLOBULIN G
     Indication: Hypogammaglobulinaemia
     Dosage: UNK, QW
     Route: 058
     Dates: start: 20210407, end: 20220620
  2. ACETYLCYSTEINE [Concomitant]
     Active Substance: ACETYLCYSTEINE
  3. ARNUITY ELLIPTA [Concomitant]
     Active Substance: FLUTICASONE FUROATE
  4. PREDNISONE [Concomitant]
     Active Substance: PREDNISONE
  5. PROAIR HFA [Concomitant]
     Active Substance: ALBUTEROL SULFATE
  6. SUMATRIPTAN [Concomitant]
     Active Substance: SUMATRIPTAN
  7. TRELEGY ELLIPTA [Concomitant]
     Active Substance: FLUTICASONE FUROATE\UMECLIDINIUM BROMIDE\VILANTEROL TRIFENATATE
  8. TRULANCE [Concomitant]
     Active Substance: PLECANATIDE
  9. UBRELVY [Concomitant]
     Active Substance: UBROGEPANT
  10. XEMBIFY [Concomitant]
     Active Substance: HUMAN IMMUNOGLOBULIN G
     Dosage: UNK
     Dates: start: 202206
  11. ATORVASTATIN [Concomitant]
     Active Substance: ATORVASTATIN
  12. AZELASTINE [Concomitant]
     Active Substance: AZELASTINE\AZELASTINE HYDROCHLORIDE
  13. BENADRYL [Concomitant]
     Active Substance: DIPHENHYDRAMINE HYDROCHLORIDE
     Dosage: UNK, PRN
  14. COLCHICINE [Concomitant]
     Active Substance: COLCHICINE
  15. CROMOLYN [Concomitant]
     Active Substance: CROMOLYN
  16. ASPIRIN [Concomitant]
     Active Substance: ASPIRIN
  17. ESOMEPRAZOLE [Concomitant]
     Active Substance: ESOMEPRAZOLE
  18. EZETIMIBE [Concomitant]
     Active Substance: EZETIMIBE
  19. FAMOTIDINE [Concomitant]
     Active Substance: FAMOTIDINE
  20. GABAPENTIN [Concomitant]
     Active Substance: GABAPENTIN
  21. LEVOCETIRIZINE [Concomitant]
     Active Substance: LEVOCETIRIZINE
  22. MELOXICAM [Concomitant]
     Active Substance: MELOXICAM

REACTIONS (7)
  - Hepatitis B [Unknown]
  - Suspected transmission of an infectious agent via product [Unknown]
  - Misleading laboratory test result [Unknown]
  - Hepatitis B core antibody positive [Unknown]
  - Hepatitis A antibody positive [Unknown]
  - Injection site reaction [Unknown]
  - Therapy cessation [Unknown]

NARRATIVE: CASE EVENT DATE: 20230920
